FAERS Safety Report 7222172-6 (Version None)
Quarter: 2011Q1

REPORT INFORMATION
  Report Type: 
  Country: None (occurrence: None)
  Receive Date: 20110104
  Receipt Date: 20101220
  Transmission Date: 20110831
  Serious: Yes (Hospitalization)
  Sender: FDA-Public Use
  Company Number: JP-2010-2953

PATIENT
  Age: 76 Year
  Sex: Female

DRUGS (2)
  1. NAVELBINE [Suspect]
     Indication: BREAST CANCER
  2. TRASTUZUMAB [Suspect]
     Indication: BREAST CANCER

REACTIONS (4)
  - ACUTE PULMONARY OEDEMA [None]
  - MITRAL VALVE INCOMPETENCE [None]
  - CARDIAC FAILURE ACUTE [None]
  - ATRIAL FIBRILLATION [None]
